FAERS Safety Report 6414469-4 (Version None)
Quarter: 2009Q4

REPORT INFORMATION
  Report Type: 
  Country: None (occurrence: None)
  Receive Date: 20091021
  Receipt Date: 20091006
  Transmission Date: 20100525
  Serious: Yes (Other)
  Sender: FDA-Public Use
  Company Number: 8053044

PATIENT
  Sex: Female
  Weight: 1.4 kg

DRUGS (5)
  1. KEPPRA [Suspect]
     Indication: EPILEPSY
     Dosage: 500 MG 2/D TRP
     Route: 064
     Dates: start: 20090121
  2. KEPPRA [Suspect]
     Indication: EPILEPSY
     Dosage: 1250 MG 2/D TRP
     Route: 064
     Dates: start: 20090222
  3. KEPPRA [Suspect]
     Indication: EPILEPSY
     Dosage: 1000 MG 2/D TRP
     Route: 064
     Dates: end: 20090401
  4. DEPAKENE [Suspect]
     Indication: EPILEPSY
     Dosage: 500 MG 2/D TRP
     Route: 064
     Dates: start: 20090331, end: 20090401
  5. FOLIC ACID [Concomitant]

REACTIONS (9)
  - ANAEMIA NEONATAL [None]
  - BRADYCARDIA FOETAL [None]
  - CAESAREAN SECTION [None]
  - HYPOTENSION [None]
  - MATERNAL DRUGS AFFECTING FOETUS [None]
  - NEONATAL RESPIRATORY DISTRESS SYNDROME [None]
  - NEUTROPENIA NEONATAL [None]
  - PATENT DUCTUS ARTERIOSUS [None]
  - PREMATURE BABY [None]
